FAERS Safety Report 7773267-X (Version None)
Quarter: 2011Q3

REPORT INFORMATION
  Report Type: 
  Country: None (occurrence: None)
  Receive Date: 20110922
  Receipt Date: 20110909
  Transmission Date: 20111222
  Serious: Yes (Other)
  Sender: FDA-Public Use
  Company Number: GB-GENENTECH-321074

PATIENT
  Sex: Female
  Weight: 106 kg

DRUGS (7)
  1. ALBUTEROL [Concomitant]
     Indication: PRODUCT USED FOR UNKNOWN INDICATION
  2. XOLAIR [Suspect]
     Indication: ASTHMA
     Dosage: 300 MG, Q4W
     Route: 058
     Dates: start: 20091104, end: 20110504
  3. CITALOPRAM HYDROBROMIDE [Concomitant]
     Indication: PRODUCT USED FOR UNKNOWN INDICATION
  4. SERETIDE [Suspect]
     Indication: ASTHMA
     Dosage: UNK UNK, UNKNOWN
     Route: 055
     Dates: start: 20050101
  5. ATROVENT [Concomitant]
     Indication: PRODUCT USED FOR UNKNOWN INDICATION
  6. MONTELUKAST SODIUM [Suspect]
     Indication: PRODUCT USED FOR UNKNOWN INDICATION
     Dosage: 10 MG, UNK
     Route: 048
     Dates: start: 20070101
  7. IPRATROPIUM BROMIDE [Suspect]
     Indication: ASTHMA
     Dosage: UNK UNK, UNKNOWN
     Route: 055

REACTIONS (1)
  - TRANSIENT ISCHAEMIC ATTACK [None]
